FAERS Safety Report 6207155-7 (Version None)
Quarter: 2009Q2

REPORT INFORMATION
  Report Type: 
  Country: None (occurrence: None)
  Receive Date: 20090528
  Receipt Date: 20090518
  Transmission Date: 20091009
  Serious: Yes (Hospitalization)
  Sender: FDA-Public Use
  Company Number: US-WATSON-2009-03581

PATIENT
  Age: 75 Year
  Sex: Female

DRUGS (2)
  1. ALTOPREV EXTENDED RELEASE (WATSON LABORATORIES) [Suspect]
     Indication: DRUG USE FOR UNKNOWN INDICATION
     Dosage: 40 MG, QHS
  2. SITAGLIPTIN [Suspect]
     Indication: DIABETES MELLITUS
     Dosage: 100 MG, DAILY X2 WKS
     Dates: start: 20090101

REACTIONS (2)
  - DRUG INTERACTION [None]
  - RHABDOMYOLYSIS [None]
